FAERS Safety Report 7102107-7 (Version None)
Quarter: 2010Q4

REPORT INFORMATION
  Report Type: 
  Country: None (occurrence: None)
  Receive Date: 20101115
  Receipt Date: 20101101
  Transmission Date: 20110411
  Serious: Yes (Hospitalization)
  Sender: FDA-Public Use
  Company Number: US-ROCHE-738645

PATIENT
  Sex: Female

DRUGS (12)
  1. BEVACIZUMAB [Suspect]
     Indication: OVARIAN CANCER
     Route: 042
     Dates: start: 20100902, end: 20101015
  2. TAXOTERE [Suspect]
     Indication: OVARIAN CANCER
     Dosage: FREQUENCY: WEEKLY X2 WEEKS
     Route: 042
     Dates: start: 20100902, end: 20101015
  3. AMBIEN CR [Concomitant]
     Dosage: DOSE: 6.25
  4. BUSPIRONE HCL [Concomitant]
  5. CELEXA [Concomitant]
  6. ZOFRAN [Concomitant]
     Dosage: FREQUENCY: PRN
  7. COMPAZINE [Concomitant]
     Dosage: FREQUENCY: PRN
  8. SENNA [Concomitant]
  9. COLACE [Concomitant]
  10. MIRALAX [Concomitant]
  11. OXYCODONE HCL [Concomitant]
     Dosage: FREQUENCY: PRN (AS NECESSARY)
  12. ATIVAN [Concomitant]
     Dosage: FREQUENCY: PRN (AS NECESSARY)

REACTIONS (1)
  - SMALL INTESTINAL OBSTRUCTION [None]
